FAERS Safety Report 7577737-9 (Version None)
Quarter: 2011Q2

REPORT INFORMATION
  Report Type: 
  Country: None (occurrence: None)
  Receive Date: 20110621
  Receipt Date: 20110606
  Transmission Date: 20111010
  Serious: Yes (Hospitalization, Other)
  Sender: FDA-Public Use
  Company Number: 2011MA006880

PATIENT
  Age: 38 Year
  Sex: Female

DRUGS (1)
  1. VENLAFAXINE HYDROCHLORIDE [Suspect]
     Indication: SUICIDE ATTEMPT

REACTIONS (8)
  - INTRACRANIAL PRESSURE INCREASED [None]
  - SUICIDE ATTEMPT [None]
  - PAPILLOEDEMA [None]
  - PSYCHIATRIC SYMPTOM [None]
  - DRUG EXPOSURE DURING PREGNANCY [None]
  - GENERAL PHYSICAL HEALTH DETERIORATION [None]
  - INTENTIONAL OVERDOSE [None]
  - SELF-MEDICATION [None]
